FAERS Safety Report 9246440 (Version 2)
Quarter: 2014Q3

REPORT INFORMATION
  Report Type: Spontaneous
  Country: US (occurrence: US)
  Receive Date: 20130422
  Receipt Date: 20140811
  Transmission Date: 20150326
  Serious: Yes (Death, Hospitalization, Other)
  Sender: FDA-Public Use
  Company Number: US-B.I. PHARMACEUTICALS,INC./RIDGEFIELD-2013-BI-10457BP

PATIENT
  Age: 66 Year
  Sex: Male
  Weight: 70 kg

DRUGS (2)
  1. PRADAXA [Suspect]
     Active Substance: DABIGATRAN ETEXILATE MESYLATE
     Indication: ATRIAL FIBRILLATION
     Dosage: 300 MG
     Route: 048
     Dates: start: 201010, end: 20121214
  2. PRADAXA [Suspect]
     Active Substance: DABIGATRAN ETEXILATE MESYLATE
     Dosage: 300 MG
     Route: 048
     Dates: start: 20121230, end: 20121231

REACTIONS (7)
  - Urinary bladder haemorrhage [Unknown]
  - Bladder cancer [Recovered/Resolved]
  - Blood urine present [Recovered/Resolved]
  - Abnormal loss of weight [Unknown]
  - Pancreatic carcinoma [Fatal]
  - Hepatic cancer [Unknown]
  - Lung disorder [Unknown]

NARRATIVE: CASE EVENT DATE: 201212
